FAERS Safety Report 12916654 (Version 1)
Quarter: 2016Q4

REPORT INFORMATION
  Report Type: Spontaneous
  Country: US (occurrence: US)
  Receive Date: 20161107
  Receipt Date: 20161107
  Transmission Date: 20170207
  Serious: No
  Sender: FDA-Public Use
  Company Number: US-JAZZ-2016-US-017198

PATIENT
  Age: 54 Year
  Sex: Male

DRUGS (28)
  1. NAPROXEN. [Concomitant]
     Active Substance: NAPROXEN
  2. PRISTIQ EXTENDED-RELEASE [Concomitant]
     Active Substance: DESVENLAFAXINE SUCCINATE
  3. PROPRANOLOL [Concomitant]
     Active Substance: PROPRANOLOL\PROPRANOLOL HYDROCHLORIDE
  4. BUSPIRONE HCL [Concomitant]
     Active Substance: BUSPIRONE HYDROCHLORIDE
  5. XYREM [Suspect]
     Active Substance: SODIUM OXYBATE
     Dosage: 3 G, FIRST DOSE
     Route: 048
     Dates: start: 201402, end: 201607
  6. MULTIVITAMINS [Concomitant]
     Active Substance: VITAMINS
  7. LOSARTAN POTASSIUM AND HYDROCHLOROTHIAZIDE [Concomitant]
     Active Substance: HYDROCHLOROTHIAZIDE\LOSARTAN POTASSIUM
  8. PSEUDOEPHEDRINE [Concomitant]
     Active Substance: PSEUDOEPHEDRINE
  9. SUMATRIPTAN SUCCINATE. [Concomitant]
     Active Substance: SUMATRIPTAN SUCCINATE
  10. OMEPRAZOLE. [Concomitant]
     Active Substance: OMEPRAZOLE
  11. XYREM [Suspect]
     Active Substance: SODIUM OXYBATE
     Dosage: 2.5 G, SECOND DOSE
     Route: 048
     Dates: start: 201607
  12. BRINTELLIX [Concomitant]
     Active Substance: VORTIOXETINE HYDROBROMIDE
  13. DIBUCAINE. [Concomitant]
     Active Substance: DIBUCAINE
  14. FUROSEMIDE. [Concomitant]
     Active Substance: FUROSEMIDE
  15. XYREM [Suspect]
     Active Substance: SODIUM OXYBATE
     Dosage: 3 G, FIRST DOSE
     Route: 048
     Dates: start: 201607
  16. DOXAZOSIN MESYLATE. [Concomitant]
     Active Substance: DOXAZOSIN MESYLATE
  17. METFORMIN HCL [Concomitant]
     Active Substance: METFORMIN HYDROCHLORIDE
  18. PRAVASTATIN SODIUM. [Concomitant]
     Active Substance: PRAVASTATIN SODIUM
  19. CONTRAVE [Concomitant]
     Active Substance: BUPROPION HYDROCHLORIDE\NALTREXONE HYDROCHLORIDE
  20. HYDROCORTISONE ACETATE PRAMOXINE HCL [Concomitant]
     Active Substance: HYDROCORTISONE ACETATE\PRAMOXINE HYDROCHLORIDE
  21. TOPIRAMATE. [Concomitant]
     Active Substance: TOPIRAMATE
  22. POTASSIUM CL [Concomitant]
     Active Substance: POTASSIUM CHLORIDE
  23. XYREM [Suspect]
     Active Substance: SODIUM OXYBATE
     Dosage: 2.25 G, SECOND DOSE
     Route: 048
     Dates: start: 201402, end: 201607
  24. ADDERALL [Concomitant]
     Active Substance: AMPHETAMINE ASPARTATE\AMPHETAMINE SULFATE\DEXTROAMPHETAMINE SACCHARATE\DEXTROAMPHETAMINE SULFATE
  25. XYREM [Suspect]
     Active Substance: SODIUM OXYBATE
     Indication: NARCOLEPSY
     Dosage: 2.25 G, BID
     Route: 048
     Dates: start: 201401, end: 201402
  26. ATORVASTATIN [Concomitant]
     Active Substance: ATORVASTATIN
  27. FLONASE [Concomitant]
     Active Substance: FLUTICASONE PROPIONATE
  28. VITAMIN D3 [Concomitant]
     Active Substance: CHOLECALCIFEROL

REACTIONS (1)
  - Prostatitis [Unknown]

NARRATIVE: CASE EVENT DATE: 201601
